FAERS Safety Report 7987846-8 (Version None)
Quarter: 2011Q4

REPORT INFORMATION
  Report Type: 
  Country: None (occurrence: None)
  Receive Date: 20111216
  Receipt Date: 20110510
  Transmission Date: 20120403
  Serious: No
  Sender: FDA-Public Use
  Company Number: US-BRISTOL-MYERS SQUIBB COMPANY-15731847

PATIENT
  Age: 13 Year
  Sex: Male

DRUGS (3)
  1. ABILIFY [Suspect]
     Indication: AFFECTIVE DISORDER
  2. RISPERDAL [Concomitant]
     Indication: AFFECTIVE DISORDER
  3. CONCERTA [Concomitant]
     Indication: AFFECTIVE DISORDER

REACTIONS (1)
  - VOMITING [None]
